FAERS Safety Report 24398285 (Version 1)
Quarter: 2024Q4

REPORT INFORMATION
  Report Type: Spontaneous
  Country: GB (occurrence: GB)
  Receive Date: 20241004
  Receipt Date: 20241004
  Transmission Date: 20250114
  Serious: Yes (Other)
  Sender: PFIZER
  Company Number: GB-MLMSERVICE-20240928-PI201627-00270-4

PATIENT
  Age: 7 Decade
  Sex: Female

DRUGS (4)
  1. SIROLIMUS [Suspect]
     Active Substance: SIROLIMUS
     Indication: Immunosuppressant drug therapy
     Dosage: UNK
  2. SIROLIMUS [Suspect]
     Active Substance: SIROLIMUS
     Indication: Renal transplant
  3. PREDNISOLONE [Suspect]
     Active Substance: PREDNISOLONE
     Indication: Immunosuppressant drug therapy
     Dosage: VARYING DOSES (5-40 MG)
  4. PREDNISOLONE [Suspect]
     Active Substance: PREDNISOLONE
     Indication: Renal transplant
     Dosage: VARYING DOSES (5-40 MG)

REACTIONS (4)
  - Mycobacterium chelonae infection [Recovering/Resolving]
  - Skin bacterial infection [Recovering/Resolving]
  - Atypical mycobacterial pneumonia [Recovering/Resolving]
  - Pneumothorax [Recovering/Resolving]
